FAERS Safety Report 24787232 (Version 1)
Quarter: 2024Q4

REPORT INFORMATION
  Report Type: Spontaneous
  Country: US (occurrence: US)
  Receive Date: 20241230
  Receipt Date: 20241230
  Transmission Date: 20250115
  Serious: Yes (Other)
  Sender: CSL BEHRING
  Company Number: US-BEH-2024188805

PATIENT
  Sex: Male

DRUGS (2)
  1. HIZENTRA [Suspect]
     Active Substance: HUMAN IMMUNOGLOBULIN G
     Indication: Chronic inflammatory demyelinating polyradiculoneuropathy
     Dosage: 60 G, QOW (STRENGTH: 0.2GM/ML)
     Route: 058
     Dates: start: 202309
  2. HIZENTRA [Suspect]
     Active Substance: HUMAN IMMUNOGLOBULIN G
     Dosage: 8 G, QOW (STRENGTH: 0.2GM/ML)
     Route: 058
     Dates: start: 202309

REACTIONS (2)
  - Urinary retention [Unknown]
  - Urinary tract infection [Unknown]
